FAERS Safety Report 4646911-3 (Version None)
Quarter: 2005Q2

REPORT INFORMATION
  Report Type: 
  Country: None (occurrence: None)
  Receive Date: 20050331
  Receipt Date: 20050215
  Transmission Date: 20051028
  Serious: No
  Sender: FDA-Public Use
  Company Number: 05P-163-0290719-00

PATIENT
  Age: 61 Year
  Sex: Female

DRUGS (6)
  1. HUMIRA [Suspect]
     Indication: RHEUMATOID ARTHRITIS
     Dosage: 40 MG, 1 IN 2 WK, SUBCUTANEOUS
     Route: 058
     Dates: end: 20050201
  2. PREDNISONE [Concomitant]
  3. LEVOTHYROXINE SODIUM [Concomitant]
  4. GABAPENTIN [Concomitant]
  5. CITALOPRAM HYDROBROMIDE [Concomitant]
  6. ALPRAZOLAM [Concomitant]

REACTIONS (2)
  - DIPLOPIA [None]
  - DRUG INEFFECTIVE [None]
